FAERS Safety Report 18610152 (Version 1)
Quarter: 2020Q4

REPORT INFORMATION
  Report Type: Spontaneous
  Country: FR (occurrence: FR)
  Receive Date: 20201214
  Receipt Date: 20201214
  Transmission Date: 20210114
  Serious: Yes (Hospitalization)
  Sender: FDA-Public Use
  Company Number: NVSC2020FR326107

PATIENT
  Age: 47 Year
  Sex: Female

DRUGS (2)
  1. ILARIS [Suspect]
     Active Substance: CANAKINUMAB
     Indication: MUCKLE-WELLS SYNDROME
     Dosage: 2300 MG, Q2MO
     Route: 058
     Dates: start: 20110101
  2. ANAKINRA [Suspect]
     Active Substance: ANAKINRA
     Indication: MUCKLE-WELLS SYNDROME
     Dosage: 1 DF, Q2MO
     Route: 058
     Dates: start: 20180601

REACTIONS (1)
  - Gliosarcoma [Not Recovered/Not Resolved]

NARRATIVE: CASE EVENT DATE: 20200822
